FAERS Safety Report 8434893 (Version 2)
Quarter: 2016Q4

REPORT INFORMATION
  Report Type: Spontaneous
  Country: BR (occurrence: BR)
  Receive Date: 20120301
  Receipt Date: 20161216
  Transmission Date: 20170207
  Serious: Yes (Death, Other)
  Sender: FDA-Public Use
  Company Number: BR-PFIZER INC-2012048986

PATIENT
  Age: 90 Year
  Sex: Female

DRUGS (1)
  1. XALATAN [Suspect]
     Active Substance: LATANOPROST
     Dosage: ONE DROP IN RIGHT EYE), 1X/DAY
     Route: 047

REACTIONS (3)
  - Cataract [Unknown]
  - Death [Fatal]
  - Apallic syndrome [Fatal]

NARRATIVE: CASE EVENT DATE: 201111
